FAERS Safety Report 22344800 (Version 1)
Quarter: 2023Q2

REPORT INFORMATION
  Report Type: Spontaneous
  Country: US (occurrence: None)
  Receive Date: 20230519
  Receipt Date: 20230519
  Transmission Date: 20230722
  Serious: Yes (Other)
  Sender: FDA-Public Use
  Company Number: None

PATIENT
  Sex: 0

DRUGS (1)
  1. ONDANSETRON [Suspect]
     Active Substance: ONDANSETRON
     Dosage: OTHER FREQUENCY : ONCE;?
     Route: 042
     Dates: start: 20230501, end: 20230501

REACTIONS (2)
  - Rash macular [None]
  - Post procedural complication [None]

NARRATIVE: CASE EVENT DATE: 20230501
